FAERS Safety Report 5605639-3 (Version None)
Quarter: 2008Q1

REPORT INFORMATION
  Report Type: 
  Country: None (occurrence: None)
  Receive Date: 20080123
  Receipt Date: 20080123
  Transmission Date: 20080703
  Serious: Yes (Other)
  Sender: FDA-Public Use
  Company Number: None

PATIENT
  Age: 41 Year
  Sex: Female
  Weight: 62.5964 kg

DRUGS (1)
  1. EFFEXOR XR [Suspect]
     Indication: DEPRESSION
     Dosage: 150MG  ONCE A DAY  PO
     Route: 048
     Dates: start: 20031120, end: 20080119

REACTIONS (6)
  - ACTIVITIES OF DAILY LIVING IMPAIRED [None]
  - ALCOHOLISM [None]
  - CRYING [None]
  - DIZZINESS [None]
  - DRUG DEPENDENCE [None]
  - PARAESTHESIA [None]
